FAERS Safety Report 7330017-9 (Version None)
Quarter: 2011Q1

REPORT INFORMATION
  Report Type: 
  Country: None (occurrence: None)
  Receive Date: 20110303
  Receipt Date: 20100804
  Transmission Date: 20110831
  Serious: Yes (Other)
  Sender: FDA-Public Use
  Company Number: US-BAYER-201015988NA

PATIENT
  Sex: Female
  Weight: 69 kg

DRUGS (8)
  1. NEXIUM [Concomitant]
     Dosage: UNK
     Dates: start: 20090219
  2. CIPRO [Concomitant]
     Dosage: DAILY DOSE 500 MG
     Route: 048
     Dates: start: 20090131
  3. SULFAMETHOXAZOLE AND TRIMETHOPRIM DOUBLE STRENGTH [Concomitant]
     Dosage: UNK
     Dates: start: 20090204
  4. DICYCLOMINE [Concomitant]
     Dosage: UNK
     Dates: start: 20090326
  5. ACETAMINOPHEN [Concomitant]
     Dosage: UNK
     Route: 048
     Dates: start: 20090131
  6. MIRALAX [Concomitant]
  7. YAZ [Suspect]
     Indication: CONTRACEPTION
     Dosage: UNK UNK, QD
     Route: 048
     Dates: start: 20070101, end: 20090401
  8. METRONIDAZOLE [Concomitant]
     Dosage: DAILY DOSE 500 MG
     Dates: start: 20090311

REACTIONS (8)
  - GASTROOESOPHAGEAL REFLUX DISEASE [None]
  - GALLBLADDER NON-FUNCTIONING [None]
  - OESOPHAGEAL STENOSIS [None]
  - JAUNDICE [None]
  - CHOLECYSTITIS [None]
  - GALLBLADDER CHOLESTEROLOSIS [None]
  - CHOLECYSTITIS CHRONIC [None]
  - GASTRITIS [None]
